FAERS Safety Report 6322353-X (Version None)
Quarter: 2009Q3

REPORT INFORMATION
  Report Type: 
  Country: None (occurrence: None)
  Receive Date: 20090824
  Receipt Date: 20090202
  Transmission Date: 20100115
  Serious: No
  Sender: FDA-Public Use
  Company Number: US-ABBOTT-09P-163-0501539-00

PATIENT
  Sex: Male
  Weight: 77.18 kg

DRUGS (2)
  1. NIASPAN [Suspect]
     Indication: HIGH DENSITY LIPOPROTEIN DECREASED
     Route: 048
     Dates: start: 20090123
  2. SIMCOR [Suspect]
     Indication: HIGH DENSITY LIPOPROTEIN DECREASED
     Dosage: 1 - 500/20MG TAB DAILY WITH NIASPAN
     Route: 048
     Dates: start: 20090128

REACTIONS (2)
  - FLUSHING [None]
  - PRURITUS [None]
